FAERS Safety Report 19153973 (Version 2)
Quarter: 2021Q2

REPORT INFORMATION
  Report Type: Spontaneous
  Country: GB (occurrence: GB)
  Receive Date: 20210419
  Receipt Date: 20210603
  Transmission Date: 20210717
  Serious: Yes (Death)
  Sender: FDA-Public Use
  Company Number: GB-MYLANLABS-2021M1023223

PATIENT
  Age: 40 Year
  Sex: Male

DRUGS (11)
  1. PARACETAMOL [Suspect]
     Active Substance: ACETAMINOPHEN
     Indication: PRODUCT USED FOR UNKNOWN INDICATION
     Dosage: UNK
  2. CLOZARIL [Suspect]
     Active Substance: CLOZAPINE
     Indication: SCHIZOPHRENIA
     Dosage: ONCE AT NIGHT
     Route: 048
     Dates: start: 20010701, end: 20210413
  3. SERTRALINE [Concomitant]
     Active Substance: SERTRALINE HYDROCHLORIDE
     Indication: ANXIETY
     Dosage: 200 MILLIGRAM, QD
     Route: 048
     Dates: end: 20210413
  4. PREGABALIN. [Concomitant]
     Active Substance: PREGABALIN
     Indication: ANXIETY
     Dosage: 600 MILLIGRAM, QD
     Route: 048
     Dates: end: 20210413
  5. LORAZEPAM. [Concomitant]
     Active Substance: LORAZEPAM
     Indication: ANXIETY
     Dosage: 1 MILLIGRAM, BID
     Route: 048
     Dates: end: 20210413
  6. MIRTAZAPINE. [Concomitant]
     Active Substance: MIRTAZAPINE
     Indication: DEPRESSED MOOD
  7. PREGABALIN. [Concomitant]
     Active Substance: PREGABALIN
     Indication: DEPRESSED MOOD
  8. SERTRALINE [Concomitant]
     Active Substance: SERTRALINE HYDROCHLORIDE
     Indication: DEPRESSED MOOD
  9. MIRTAZAPINE. [Concomitant]
     Active Substance: MIRTAZAPINE
     Indication: ANXIETY
     Dosage: 15 MILLIGRAM, QD
     Route: 048
     Dates: end: 20210413
  10. AMISULPRIDE [Concomitant]
     Active Substance: AMISULPRIDE
     Indication: SCHIZOPHRENIA
     Dosage: 400 MILLIGRAM, HS (AT NIGHT)
     Route: 048
     Dates: end: 20210413
  11. PIRENZEPINE [Concomitant]
     Active Substance: PIRENZEPINE
     Indication: EXTRAPYRAMIDAL DISORDER
     Dosage: 50 MILLIGRAM, HS (AT NIGHT)
     Route: 048
     Dates: end: 20210413

REACTIONS (1)
  - Overdose [Fatal]
